FAERS Safety Report 7065122-8 (Version None)
Quarter: 2010Q4

REPORT INFORMATION
  Report Type: 
  Country: None (occurrence: None)
  Receive Date: 20101022
  Receipt Date: 20101022
  Transmission Date: 20110411
  Serious: Yes (Life-Threatening, Hospitalization)
  Sender: FDA-Public Use
  Company Number: None

PATIENT
  Age: 76 Year
  Sex: Male
  Weight: 49.8957 kg

DRUGS (2)
  1. PRECEDEX [Suspect]
     Indication: SEDATION
     Dosage: VARIABLE TITRATE IV DRIP
     Route: 041
     Dates: start: 20100924, end: 20100926
  2. METOPROLOL / AMIODOARONE [Suspect]
     Indication: ATRIAL FIBRILLATION
     Dosage: 12.5 MG / 200 MG BID / DAILY PO
     Route: 048
     Dates: start: 20100920, end: 20101014

REACTIONS (3)
  - BRADYCARDIA [None]
  - CARDIO-RESPIRATORY ARREST [None]
  - ELECTROMECHANICAL DISSOCIATION [None]
